FAERS Safety Report 14924992 (Version 2)
Quarter: 2018Q3

REPORT INFORMATION
  Report Type: Report from Study
  Country: BR (occurrence: BR)
  Receive Date: 20180522
  Receipt Date: 20180821
  Transmission Date: 20181010
  Serious: Yes (Hospitalization, Other)
  Sender: FDA-Public Use
  Company Number: PHHY2018BR021250

PATIENT
  Sex: Female
  Weight: 74 kg

DRUGS (2)
  1. COSENTYX [Suspect]
     Active Substance: SECUKINUMAB
     Dosage: 300 MG, QMO (2 INJECTABLE PENS OF 150 MG)
     Route: 058
     Dates: start: 20180404, end: 20180504
  2. COSENTYX [Suspect]
     Active Substance: SECUKINUMAB
     Indication: PSORIATIC ARTHROPATHY
     Dosage: 300 MG, QW
     Route: 058
     Dates: start: 20180106

REACTIONS (7)
  - Anaemia [Unknown]
  - Urinary tract infection [Recovering/Resolving]
  - Vaginal haemorrhage [Not Recovered/Not Resolved]
  - Blood urea abnormal [Not Recovered/Not Resolved]
  - Haemorrhage [Unknown]
  - Injection site erythema [Unknown]
  - Haemoglobin decreased [Unknown]
